FAERS Safety Report 10438462 (Version 1)
Quarter: 2014Q3

REPORT INFORMATION
  Report Type: Report from Study
  Country: GB (occurrence: GB)
  Receive Date: 20140908
  Receipt Date: 20140908
  Transmission Date: 20150326
  Serious: Yes (Hospitalization)
  Sender: FDA-Public Use
  Company Number: GB-GLAXOSMITHKLINE-B1029719A

PATIENT
  Age: 64 Year
  Sex: Male

DRUGS (4)
  1. RESPONTIN [Concomitant]
  2. TIOTROPIUM [Concomitant]
     Active Substance: TIOTROPIUM
  3. SERETIDE [Suspect]
     Active Substance: FLUTICASONE FUROATE\SALMETEROL XINAFOATE
     Indication: CHRONIC OBSTRUCTIVE PULMONARY DISEASE
     Dosage: 2PUFF TWICE PER DAY
     Route: 055
  4. FOSTAIR [Concomitant]

REACTIONS (2)
  - Drug ineffective [Unknown]
  - Off label use [Unknown]
